FAERS Safety Report 9626500 (Version 1)
Quarter: 2013Q4

REPORT INFORMATION
  Report Type: Spontaneous
  Country: US (occurrence: None)
  Receive Date: 20131015
  Receipt Date: 20131015
  Transmission Date: 20140711
  Serious: No
  Sender: FDA-Public Use
  Company Number: None

PATIENT
  Age: 70 Year
  Sex: Female
  Weight: 58.97 kg

DRUGS (1)
  1. ALENDRONATE [Suspect]
     Dosage: 1 PILL, TAKEN BY MOUTH
     Route: 048
     Dates: start: 20130519, end: 20130908

REACTIONS (3)
  - Arthralgia [None]
  - Myalgia [None]
  - Pain in extremity [None]
